FAERS Safety Report 23827792 (Version 1)
Quarter: 2024Q2

REPORT INFORMATION
  Report Type: Spontaneous
  Country: US (occurrence: US)
  Receive Date: 20240507
  Receipt Date: 20240507
  Transmission Date: 20240716
  Serious: No
  Sender: FDA-Public Use
  Company Number: USA--2023-US-001524

PATIENT
  Age: 90 Year
  Sex: Male

DRUGS (3)
  1. BRIMONIDINE TARTRATE [Suspect]
     Active Substance: BRIMONIDINE TARTRATE
     Dosage: 1GGT OU BID
  2. dorzolamide OS [Concomitant]
  3. Timolol OS [Concomitant]

REACTIONS (3)
  - Vision blurred [Recovered/Resolved]
  - Photophobia [Recovered/Resolved]
  - Eye irritation [Recovered/Resolved]

NARRATIVE: CASE EVENT DATE: 20231001
